FAERS Safety Report 6530268-7 (Version None)
Quarter: 2010Q1

REPORT INFORMATION
  Report Type: 
  Country: None (occurrence: None)
  Receive Date: 20100107
  Receipt Date: 20091216
  Transmission Date: 20100710
  Serious: Yes (Hospitalization)
  Sender: FDA-Public Use
  Company Number: CA-SANOFI-AVENTIS-2009SA000299

PATIENT
  Age: 69 Year
  Sex: Female

DRUGS (19)
  1. LANTUS [Suspect]
     Indication: DIABETES MELLITUS
     Route: 058
     Dates: start: 20090827
  2. CLIKSTAR [Suspect]
     Indication: DIABETES MELLITUS
     Dates: start: 20090827
  3. ASPIRIN [Concomitant]
  4. ATORVASTATIN CALCIUM [Concomitant]
  5. IRBESARTAN [Concomitant]
  6. INSULIN GLARGINE [Concomitant]
     Route: 058
  7. NOVORAPID [Concomitant]
     Dosage: DOSE:3 UNIT(S)
     Route: 058
  8. NOVORAPID [Concomitant]
     Dosage: DOSE:3 UNIT(S)
     Route: 058
  9. NOVORAPID [Concomitant]
     Dosage: DOSE:5 UNIT(S)
     Route: 058
  10. CITALOPRAM HYDROBROMIDE [Concomitant]
  11. TEMAZEPAM [Concomitant]
  12. CIPROFLOXACIN HCL [Concomitant]
  13. ACETAMINOPHEN [Concomitant]
  14. DIMENHYDRINATE [Concomitant]
  15. HEPARIN [Concomitant]
     Route: 058
  16. MULTI-VITAMINS [Concomitant]
     Route: 048
  17. PHOSPHATE NOVARTIS [Concomitant]
  18. CITALOPRAM HYDROBROMIDE [Concomitant]
  19. TEMAZEPAM [Concomitant]

REACTIONS (1)
  - KETOACIDOSIS [None]
